FAERS Safety Report 9314270 (Version 1)
Quarter: 2013Q2

REPORT INFORMATION
  Report Type: Report from Study
  Country: US (occurrence: US)
  Receive Date: 20130529
  Receipt Date: 20130529
  Transmission Date: 20140414
  Serious: Yes (Other)
  Sender: FDA-Public Use
  Company Number: PHEH2013US011509

PATIENT
  Sex: Female

DRUGS (7)
  1. EXJADE [Suspect]
     Indication: IRON METABOLISM DISORDER
     Dosage: 1000 MG, QD
     Route: 048
     Dates: start: 20130405
  2. PREDNISONE [Concomitant]
     Dosage: UNK UKN, UNK
  3. MULTI-VIT [Concomitant]
     Dosage: UNK UKN, UNK
  4. FOLIC ACID [Concomitant]
     Dosage: UNK UKN, UNK
  5. CALCIUM [Concomitant]
     Dosage: UNK UKN, UNK
  6. VIT D [Concomitant]
     Dosage: UNK UKN, UNK
  7. SUPER B COMPL [Concomitant]
     Dosage: UNK UKN, UNK

REACTIONS (1)
  - Sepsis [Unknown]
